FAERS Safety Report 5415014-2 (Version None)
Quarter: 2007Q3

REPORT INFORMATION
  Report Type: 
  Country: None (occurrence: None)
  Receive Date: 20070814
  Receipt Date: 20070814
  Transmission Date: 20080115
  Serious: Yes (Hospitalization)
  Sender: FDA-Public Use
  Company Number: None

PATIENT
  Age: 86 Year
  Sex: Male

DRUGS (9)
  1. AMIODARONE HCL [Suspect]
     Indication: ARRHYTHMIA
     Dosage: 200 MG DAILY PO
     Route: 048
  2. TYLENOL (CAPLET) [Concomitant]
  3. LORAZEPAM [Concomitant]
  4. ASPIRIN [Concomitant]
  5. FERROUS SULFATE [Concomitant]
  6. RISPERIDONE [Concomitant]
  7. HALOPERIDOL [Concomitant]
  8. AMBIEN [Concomitant]
  9. AMANTADINE HCL [Concomitant]

REACTIONS (4)
  - ABNORMAL BEHAVIOUR [None]
  - CONDITION AGGRAVATED [None]
  - DEMENTIA [None]
  - HYPERTHYROIDISM [None]
